FAERS Safety Report 7300743-6 (Version None)
Quarter: 2011Q1

REPORT INFORMATION
  Report Type: 
  Country: None (occurrence: None)
  Receive Date: 20110105
  Receipt Date: 20101006
  Transmission Date: 20110831
  Serious: Yes (Life-Threatening, Hospitalization, Disabling, Other)
  Sender: FDA-Public Use
  Company Number: 305750

PATIENT
  Age: 50 Year
  Sex: Female
  Weight: 113 kg

DRUGS (2)
  1. SODIUM CHLORIDE 0.9% [Concomitant]
  2. ACTIVASE [Suspect]
     Indication: CEREBROVASCULAR ACCIDENT
     Dosage: INTRAVENOUS
     Route: 042
     Dates: start: 20100613

REACTIONS (2)
  - HAEMORRHAGE INTRACRANIAL [None]
  - ANGIOEDEMA [None]
